FAERS Safety Report 5568924-X (Version None)
Quarter: 2007Q4

REPORT INFORMATION
  Report Type: 
  Country: None (occurrence: None)
  Receive Date: 20071220
  Receipt Date: 20070322
  Transmission Date: 20080405
  Serious: No
  Sender: FDA-Public Use
  Company Number: A0644276A

PATIENT
  Age: 83 Year
  Sex: Male

DRUGS (8)
  1. AVODART [Suspect]
     Indication: BENIGN PROSTATIC HYPERPLASIA
     Dosage: .5MG PER DAY
     Route: 048
     Dates: start: 20070222
  2. PROTONIX [Concomitant]
  3. VITAMIN B-12 [Concomitant]
  4. VITAMIN B-12 [Concomitant]
  5. METOPROLOL SUCCINATE [Concomitant]
  6. MIRTAZAPINE [Concomitant]
  7. DIGITEK [Concomitant]
  8. NIFEREX [Concomitant]

REACTIONS (1)
  - DRUG INEFFECTIVE [None]
